FAERS Safety Report 7908326-1 (Version None)
Quarter: 2011Q4

REPORT INFORMATION
  Report Type: 
  Country: None (occurrence: None)
  Receive Date: 20111111
  Receipt Date: 20111104
  Transmission Date: 20120403
  Serious: No
  Sender: FDA-Public Use
  Company Number: US-BIOGENIDEC-2011BI042348

PATIENT
  Age: 51 Year
  Sex: Female

DRUGS (3)
  1. PROZAC [Concomitant]
     Indication: DEPRESSION
     Route: 048
     Dates: start: 20070101
  2. AVONEX [Suspect]
     Indication: MULTIPLE SCLEROSIS
     Route: 030
     Dates: start: 20070101
  3. XANAX [Concomitant]
     Indication: DEPRESSION
     Route: 048
     Dates: start: 20070101

REACTIONS (11)
  - FALL [None]
  - FATIGUE [None]
  - STRESS [None]
  - DEPRESSION [None]
  - SCRATCH [None]
  - WEIGHT DECREASED [None]
  - INJURY [None]
  - TREMOR [None]
  - EXCORIATION [None]
  - ABDOMINAL PAIN UPPER [None]
  - CONTUSION [None]
